FAERS Safety Report 4991009-8 (Version None)
Quarter: 2006Q2

REPORT INFORMATION
  Report Type: 
  Country: None (occurrence: None)
  Receive Date: 20060503
  Receipt Date: 20050713
  Transmission Date: 20061013
  Serious: Yes (Hospitalization, Disabling, Other)
  Sender: FDA-Public Use
  Company Number: US-MERCK-0507USA01841

PATIENT
  Age: 43 Year
  Sex: Female
  Weight: 77 kg

DRUGS (6)
  1. VIOXX [Suspect]
     Indication: ARTHRITIS
     Route: 048
     Dates: start: 19990701, end: 20030801
  2. IBUPROFEN [Concomitant]
     Route: 065
  3. PRAVACHOL [Concomitant]
     Route: 065
  4. GABAPENTIN [Concomitant]
     Route: 065
  5. CARTIA (DILTIAZEM HYDROCHLORIDE) [Concomitant]
     Route: 065
  6. NORTRIPTYLINE [Concomitant]
     Route: 065

REACTIONS (6)
  - ANXIETY [None]
  - BACK DISORDER [None]
  - CARDIAC DISORDER [None]
  - CEREBROVASCULAR ACCIDENT [None]
  - EMOTIONAL DISORDER [None]
  - MYOCARDIAL INFARCTION [None]
